FAERS Safety Report 8519400-3 (Version None)
Quarter: 2012Q3

REPORT INFORMATION
  Report Type: 
  Country: None (occurrence: None)
  Receive Date: 20120718
  Receipt Date: 20120717
  Transmission Date: 20120928
  Serious: No
  Sender: FDA-Public Use
  Company Number: US-TEVA-339801USA

PATIENT
  Sex: Male

DRUGS (4)
  1. LAMICTAL [Concomitant]
  2. ZOLOFT [Concomitant]
  3. BUSPAR [Concomitant]
  4. NUVIGIL [Suspect]
     Route: 048
     Dates: start: 20120515

REACTIONS (4)
  - PALPITATIONS [None]
  - ASTHENIA [None]
  - DIZZINESS [None]
  - CHEST DISCOMFORT [None]
